FAERS Safety Report 16978301 (Version 1)
Quarter: 2019Q4

REPORT INFORMATION
  Report Type: Report from Study
  Country: BR (occurrence: BR)
  Receive Date: 20191031
  Receipt Date: 20191031
  Transmission Date: 20200122
  Serious: Yes (Hospitalization)
  Sender: FDA-Public Use
  Company Number: PHHY2019BR000644

PATIENT
  Age: 37 Year
  Sex: Female
  Weight: 63 kg

DRUGS (3)
  1. GILENYA [Suspect]
     Active Substance: FINGOLIMOD HYDROCHLORIDE
     Dosage: 1 DF, QOD
     Route: 048
  2. GILENYA [Suspect]
     Active Substance: FINGOLIMOD HYDROCHLORIDE
     Dosage: 0.5 MG, UNK
     Route: 065
     Dates: start: 20181120
  3. GILENYA [Suspect]
     Active Substance: FINGOLIMOD HYDROCHLORIDE
     Indication: RELAPSING-REMITTING MULTIPLE SCLEROSIS
     Dosage: 1 DF, QD
     Route: 048
     Dates: start: 201809

REACTIONS (9)
  - Multiple sclerosis relapse [Recovering/Resolving]
  - Feeling cold [Recovering/Resolving]
  - Optic neuritis [Recovering/Resolving]
  - Vision blurred [Not Recovered/Not Resolved]
  - Feeling abnormal [Recovering/Resolving]
  - Pain in extremity [Unknown]
  - Hyperhidrosis [Recovering/Resolving]
  - Hypoaesthesia [Recovering/Resolving]
  - Visual impairment [Unknown]

NARRATIVE: CASE EVENT DATE: 20190802
